FAERS Safety Report 9660497 (Version 1)
Quarter: 2013Q4

REPORT INFORMATION
  Report Type: Spontaneous
  Country: NL (occurrence: NL)
  Receive Date: 20131031
  Receipt Date: 20131031
  Transmission Date: 20140711
  Serious: Yes (Hospitalization)
  Sender: FDA-Public Use
  Company Number: NL-ASTRAZENECA-2013SE78099

PATIENT
  Age: 74 Year
  Sex: Male

DRUGS (8)
  1. METOPROLOL SUCCINATE [Suspect]
     Route: 048
     Dates: start: 2013
  2. CARBAMAZEPINE [Interacting]
     Indication: TRIGEMINAL NEURALGIA
     Route: 048
     Dates: start: 2013, end: 20131017
  3. PARACETAMOL [Concomitant]
     Route: 048
  4. TRAMADOL DRUPPELS [Concomitant]
     Dosage: 100 MG/ML, 40 GTT DAILY
     Route: 048
  5. SIMVASTATIN [Concomitant]
     Route: 048
  6. METFORMIN [Concomitant]
     Route: 048
  7. AMLODIPINE, HYDROCHLOROTHIAZIDE, VALSARTAN [Concomitant]
     Dosage: 10/160/25 MG
     Route: 048
  8. LYRICA [Concomitant]
     Route: 048

REACTIONS (4)
  - Drug interaction [Recovered/Resolved]
  - Sinus arrest [Recovered/Resolved]
  - Sinus bradycardia [Recovered/Resolved]
  - Syncope [Unknown]
